FAERS Safety Report 15933264 (Version 1)
Quarter: 2019Q1

REPORT INFORMATION
  Report Type: Report from Study
  Country: ES (occurrence: ES)
  Receive Date: 20190207
  Receipt Date: 20190207
  Transmission Date: 20190417
  Serious: Yes (Death, Other)
  Sender: FDA-Public Use
  Company Number: ES-JNJFOC-20190204527

PATIENT

DRUGS (1)
  1. DARATUMUMAB [Suspect]
     Active Substance: DARATUMUMAB
     Indication: PLASMA CELL MYELOMA
     Route: 065

REACTIONS (7)
  - Toxicity to various agents [Fatal]
  - Infusion related reaction [Unknown]
  - Anaemia [Unknown]
  - Intestinal perforation [Fatal]
  - Disease progression [Fatal]
  - Neutropenia [Unknown]
  - Thrombocytopenia [Unknown]
